FAERS Safety Report 4686120-5 (Version None)
Quarter: 2005Q2

REPORT INFORMATION
  Report Type: 
  Country: None (occurrence: None)
  Receive Date: 20050606
  Receipt Date: 20050525
  Transmission Date: 20051028
  Serious: Yes (Other)
  Sender: FDA-Public Use
  Company Number: 105946ISR

PATIENT
  Age: 55 Year
  Sex: Male

DRUGS (4)
  1. GLATIRAMER ACETATE [Suspect]
     Indication: MULTIPLE SCLEROSIS
     Dosage: 20 MILLIGRAM, SUBCUTANEOUS
     Route: 058
     Dates: start: 20011001, end: 20050207
  2. ASPIRIN [Concomitant]
  3. GINKGO TREE LEAVES EXTRACT [Concomitant]
  4. TESTOSTERONE [Concomitant]

REACTIONS (9)
  - INJECTION SITE DISCOLOURATION [None]
  - INJECTION SITE ERYTHEMA [None]
  - INJECTION SITE HAEMORRHAGE [None]
  - INJECTION SITE INDURATION [None]
  - INJECTION SITE NECROSIS [None]
  - INJECTION SITE OEDEMA [None]
  - INJECTION SITE PAIN [None]
  - LIVIDITY [None]
  - SCAR [None]
